FAERS Safety Report 9101457 (Version 1)
Quarter: 2013Q1

REPORT INFORMATION
  Report Type: Report from Study
  Country: US (occurrence: US)
  Receive Date: 20130218
  Receipt Date: 20130218
  Transmission Date: 20140127
  Serious: No
  Sender: FDA-Public Use
  Company Number: US-ABBOTT-12P-163-0914255-00

PATIENT
  Sex: Male
  Weight: 93.07 kg

DRUGS (8)
  1. SIMCOR 500MG/20MG [Suspect]
     Indication: HIGH DENSITY LIPOPROTEIN DECREASED
     Dosage: 500/20 MG AT BEDTIME
     Dates: start: 20120310
  2. SIMCOR 500MG/20MG [Suspect]
     Indication: BLOOD TRIGLYCERIDES INCREASED
  3. SIMCOR 500MG/20MG [Suspect]
     Indication: LOW DENSITY LIPOPROTEIN INCREASED
  4. SIMCOR 500MG/20MG [Suspect]
     Indication: BLOOD CHOLESTEROL INCREASED
  5. LISINOPRIL [Concomitant]
     Indication: PRODUCT USED FOR UNKNOWN INDICATION
  6. METFORMIN [Concomitant]
     Indication: PRODUCT USED FOR UNKNOWN INDICATION
  7. GLIPIZIDE [Concomitant]
     Indication: PRODUCT USED FOR UNKNOWN INDICATION
     Dosage: 5 MG DAILY
  8. ASA [Concomitant]
     Indication: PRODUCT USED FOR UNKNOWN INDICATION

REACTIONS (4)
  - Flushing [Recovering/Resolving]
  - Erythema [Recovering/Resolving]
  - Feeling hot [Recovering/Resolving]
  - Blood glucose increased [Unknown]
